FAERS Safety Report 8000777-2 (Version None)
Quarter: 2011Q4

REPORT INFORMATION
  Report Type: 
  Country: None (occurrence: None)
  Receive Date: 20111222
  Receipt Date: 20111222
  Transmission Date: 20120403
  Serious: Yes (Life-Threatening, Hospitalization)
  Sender: FDA-Public Use
  Company Number: JP-B.I. PHARMACEUTICALS,INC./RIDGEFIELD-2011-DE-06138GD

PATIENT
  Sex: Male
  Weight: 82.3 kg

DRUGS (11)
  1. LITHIUM CARBONATE [Suspect]
     Indication: BIPOLAR I DISORDER
     Dosage: 500 MG
     Route: 048
     Dates: start: 19970101, end: 20110330
  2. ASPIRIN [Concomitant]
     Indication: THROMBOSIS
     Dosage: 100 MG
     Route: 048
     Dates: start: 20100114
  3. MICARDIS [Suspect]
     Indication: HYPERTENSION
     Dosage: 40 MG
     Route: 048
     Dates: start: 20110214, end: 20110321
  4. CARVEDILOL [Concomitant]
     Indication: HYPERTENSION
     Dosage: 20 MG
     Route: 048
     Dates: start: 19850101
  5. SILECE [Concomitant]
     Indication: INSOMNIA
     Dosage: 2 MG
     Route: 048
     Dates: start: 19970101
  6. TEGRETOL [Concomitant]
     Indication: BIPOLAR I DISORDER
     Dosage: 600 MG
     Route: 048
     Dates: start: 20080801, end: 20091207
  7. ALLOPURINOL [Concomitant]
     Indication: HYPERURICAEMIA
     Dosage: 100 MG
     Route: 048
     Dates: start: 20100323
  8. SIGMART [Concomitant]
     Indication: HYPERTENSION
     Dosage: 15 MG
     Route: 048
     Dates: start: 20100114
  9. EPLERENONE [Suspect]
     Indication: HYPERTENSION
     Dosage: 50 MG
     Route: 048
     Dates: start: 20100217, end: 20110322
  10. LANSOPRAZOLE [Concomitant]
     Indication: GASTRIC ULCER
     Dosage: 15 MG
     Route: 048
     Dates: start: 20100114
  11. NITRAZEPAM [Concomitant]
     Indication: INSOMNIA
     Dosage: 5 MG
     Route: 048
     Dates: start: 20100917, end: 20110705

REACTIONS (2)
  - RENAL IMPAIRMENT [None]
  - TOXICITY TO VARIOUS AGENTS [None]
